FAERS Safety Report 13538664 (Version 1)
Quarter: 2017Q2

REPORT INFORMATION
  Report Type: Spontaneous
  Country: US (occurrence: US)
  Receive Date: 20170512
  Receipt Date: 20170512
  Transmission Date: 20170830
  Serious: No
  Sender: FDA-Public Use
  Company Number: US-009507513-1704USA005886

PATIENT
  Sex: Female

DRUGS (1)
  1. JANUVIA [Suspect]
     Active Substance: SITAGLIPTIN PHOSPHATE
     Indication: GLYCOSYLATED HAEMOGLOBIN INCREASED
     Dosage: UNK
     Route: 048

REACTIONS (4)
  - Inability to afford medication [Unknown]
  - Product blister packaging issue [Unknown]
  - Dehydration [Unknown]
  - Nausea [Unknown]
